FAERS Safety Report 9390887 (Version 1)
Quarter: 2013Q3

REPORT INFORMATION
  Report Type: Spontaneous
  Country: US (occurrence: None)
  Receive Date: 20130705
  Receipt Date: 20130705
  Transmission Date: 20140515
  Serious: No
  Sender: FDA-Public Use
  Company Number: None

PATIENT
  Age: 74 Year
  Sex: Female

DRUGS (1)
  1. FORTEO 600MCG/2.4ML ELI LILLY [Suspect]
     Indication: OSTEOPOROSIS
     Route: 058
     Dates: start: 20120424, end: 201306

REACTIONS (1)
  - Pruritus [None]
